FAERS Safety Report 5504056-4 (Version None)
Quarter: 2007Q4

REPORT INFORMATION
  Report Type: 
  Country: None (occurrence: None)
  Receive Date: 20071030
  Receipt Date: 20071022
  Transmission Date: 20080405
  Serious: Yes (Other)
  Sender: FDA-Public Use
  Company Number: PAR_01733_2007

PATIENT
  Sex: Female
  Weight: 90.7194 kg

DRUGS (3)
  1. MAGACE ES ORAL SUSPENSION [Suspect]
     Indication: ENDOMETRIAL CANCER
     Dosage: 2 TEASPOONS BID; ORAL
     Route: 048
     Dates: start: 20070401
  2. MAGACE ES ORAL SUSPENSION [Suspect]
     Indication: ENDOMETRIAL CANCER
     Dosage: (1 TEASPOON BID;ORAL)
     Route: 048
     Dates: start: 20070501
  3. INSULIN [Concomitant]

REACTIONS (7)
  - BLOOD GLUCOSE INCREASED [None]
  - DRUG PRESCRIBING ERROR [None]
  - DRY SKIN [None]
  - HEADACHE [None]
  - INCORRECT DOSE ADMINISTERED [None]
  - POLLAKIURIA [None]
  - VISUAL DISTURBANCE [None]
